FAERS Safety Report 11827367 (Version 1)
Quarter: 2015Q4

REPORT INFORMATION
  Report Type: Spontaneous
  Country: DK (occurrence: DK)
  Receive Date: 20151211
  Receipt Date: 20151211
  Transmission Date: 20160305
  Serious: Yes (Death)
  Sender: FDA-Public Use
  Company Number: DK-ROXANE LABORATORIES, INC.-2015-RO-02054RO

PATIENT
  Age: 57 Year
  Sex: Female
  Weight: 78 kg

DRUGS (5)
  1. CHLOPROTHIXENE [Concomitant]
     Route: 065
  2. PARACETAMOL [Concomitant]
     Active Substance: ACETAMINOPHEN
     Route: 065
  3. QUETIAPINE FUMARATE. [Suspect]
     Active Substance: QUETIAPINE FUMARATE
     Indication: PRODUCT USED FOR UNKNOWN INDICATION
     Route: 065
  4. PARACETAMOL [Concomitant]
     Active Substance: ACETAMINOPHEN
     Route: 065
  5. OXAZEPAM. [Concomitant]
     Active Substance: OXAZEPAM
     Route: 065

REACTIONS (2)
  - Toxicity to various agents [Fatal]
  - Ketoacidosis [Fatal]
